FAERS Safety Report 5063714-9 (Version None)
Quarter: 2006Q3

REPORT INFORMATION
  Report Type: 
  Country: None (occurrence: None)
  Receive Date: 20060727
  Receipt Date: 20060719
  Transmission Date: 20061208
  Serious: Yes (Other)
  Sender: FDA-Public Use
  Company Number: US-BRISTOL-MYERS SQUIBB COMPANY-13447057

PATIENT
  Sex: Male

DRUGS (1)
  1. DEFINITY [Suspect]
     Route: 042
     Dates: start: 20060719

REACTIONS (2)
  - COMA [None]
  - RESUSCITATION [None]
